FAERS Safety Report 17509776 (Version 1)
Quarter: 2020Q1

REPORT INFORMATION
  Report Type: Spontaneous
  Country: FR (occurrence: FR)
  Receive Date: 20200306
  Receipt Date: 20200306
  Transmission Date: 20200409
  Serious: Yes (Hospitalization)
  Sender: FDA-Public Use
  Company Number: FR-PFIZER INC-2020096752

PATIENT
  Age: 15 Year
  Sex: Female
  Weight: 75 kg

DRUGS (5)
  1. IMOVANE [Concomitant]
     Active Substance: ZOPICLONE
     Dosage: 7.5 MG, UNK
  2. ATARAXONE [HYDROXYZINE] [Concomitant]
     Dosage: 25 MG, UNK
  3. RISPERDAL [Suspect]
     Active Substance: RISPERIDONE
     Dosage: 120 MG, SINGLE
     Route: 048
     Dates: start: 20200127, end: 20200127
  4. TERCIAN [CYAMEMAZINE] [Concomitant]
     Active Substance: CYAMEMAZINE
     Dosage: 25 MG, UNK
  5. ZOLOFT [Suspect]
     Active Substance: SERTRALINE HYDROCHLORIDE
     Dosage: 700 MG, SINGLE
     Route: 048
     Dates: start: 20200127, end: 20200127

REACTIONS (3)
  - Toxicity to various agents [Recovered/Resolved]
  - Tachycardia [Recovered/Resolved]
  - Hypokalaemia [Recovered/Resolved]

NARRATIVE: CASE EVENT DATE: 20200127
